FAERS Safety Report 14611458 (Version 1)
Quarter: 2018Q1

REPORT INFORMATION
  Report Type: Spontaneous
  Country: GB (occurrence: GB)
  Receive Date: 20180308
  Receipt Date: 20180308
  Transmission Date: 20180509
  Serious: Yes (Hospitalization, Disabling, Other)
  Sender: FDA-Public Use
  Company Number: GB-009507513-1802GBR013186

PATIENT
  Age: 44 Year
  Sex: Male
  Weight: 96 kg

DRUGS (1)
  1. PREGNYL [Suspect]
     Active Substance: CHORIOGONADOTROPIN ALFA
     Indication: SPERM CONCENTRATION DECREASED
     Dosage: INTO STOMACH
     Dates: start: 20150501, end: 20170906

REACTIONS (2)
  - Testicular atrophy [Unknown]
  - Testicular pain [Not Recovered/Not Resolved]

NARRATIVE: CASE EVENT DATE: 20170601
